FAERS Safety Report 6638053-2 (Version None)
Quarter: 2010Q1

REPORT INFORMATION
  Report Type: 
  Country: None (occurrence: None)
  Receive Date: 20100317
  Receipt Date: 20100308
  Transmission Date: 20100710
  Serious: Yes (Other)
  Sender: FDA-Public Use
  Company Number: US-BAYER-201016142NA

PATIENT
  Age: 26 Year
  Sex: Female

DRUGS (1)
  1. MIRENA [Suspect]
     Indication: CONTRACEPTION
     Route: 015
     Dates: start: 20081001

REACTIONS (8)
  - ABDOMINAL PAIN UPPER [None]
  - ABORTION SPONTANEOUS [None]
  - HEADACHE [None]
  - MENORRHAGIA [None]
  - MENSTRUAL DISORDER [None]
  - PREGNANCY WITH CONTRACEPTIVE DEVICE [None]
  - VAGINAL DISCHARGE [None]
  - VISION BLURRED [None]
